FAERS Safety Report 15153822 (Version 1)
Quarter: 2018Q3

REPORT INFORMATION
  Report Type: Spontaneous
  Country: US (occurrence: US)
  Receive Date: 20180619
  Receipt Date: 20180619
  Transmission Date: 20181010
  Serious: Yes (Other)
  Sender: FDA-Public Use
  Company Number: None

PATIENT
  Age: 53 Year
  Sex: Female
  Weight: 42.64 kg

DRUGS (12)
  1. APPLE CIDER VINEGAR [Concomitant]
     Active Substance: APPLE CIDER VINEGAR
  2. ROSADYN [Concomitant]
  3. VALACYCLOVIR TABLETS, USP 1 GRAM [Suspect]
     Active Substance: VALACYCLOVIR HYDROCHLORIDE
     Indication: ORAL HERPES
     Dosage: ?          QUANTITY:1 DF DOSAGE FORM;?
     Route: 048
     Dates: start: 201710, end: 20180601
  4. COGNIFEN [Concomitant]
  5. PROBIOTIC [Concomitant]
     Active Substance: PROBIOTICS NOS
  6. OMEGA 3 [Concomitant]
     Active Substance: OMEGA-3 FATTY ACIDS
  7. XANAX [Concomitant]
     Active Substance: ALPRAZOLAM
  8. EXT EXTREME MULTI?VIT [Concomitant]
  9. OCUVITE [Concomitant]
     Active Substance: VITAMINS
  10. FISH OIL [Concomitant]
     Active Substance: FISH OIL
  11. PECTIN [Concomitant]
     Active Substance: PECTIN
  12. KLONOPIN [Concomitant]
     Active Substance: CLONAZEPAM

REACTIONS (13)
  - Vomiting [None]
  - Feeding disorder [None]
  - Fall [None]
  - Nausea [None]
  - Vision blurred [None]
  - Tremor [None]
  - Road traffic accident [None]
  - Coordination abnormal [None]
  - Pruritus [None]
  - Confusional state [None]
  - Balance disorder [None]
  - Fluid intake reduced [None]
  - Muscular weakness [None]

NARRATIVE: CASE EVENT DATE: 20180601
